FAERS Safety Report 8917744 (Version 1)
Quarter: 2012Q4

REPORT INFORMATION
  Report Type: 
  Country: AR (occurrence: AR)
  Receive Date: 20121120
  Receipt Date: 20121120
  Transmission Date: 20130627
  Serious: Yes (Other)
  Sender: FDA-Public Use
  Company Number: AR-AMGEN-ARGSP2012073805

PATIENT
  Age: 71 Year
  Sex: Female

DRUGS (3)
  1. ENBREL [Suspect]
     Indication: RHEUMATOID ARTHRITIS
     Dosage: 25 mg, weekly
     Route: 058
     Dates: start: 20061227, end: 20121107
  2. ALPLAX [Concomitant]
     Dosage: UNK
  3. VAPRESAN [Concomitant]
     Dosage: UNK

REACTIONS (2)
  - Cholelithiasis [Not Recovered/Not Resolved]
  - Nasopharyngitis [Recovering/Resolving]
